FAERS Safety Report 5628013-2 (Version None)
Quarter: 2008Q1

REPORT INFORMATION
  Report Type: 
  Country: None (occurrence: None)
  Receive Date: 20080215
  Receipt Date: 20080104
  Transmission Date: 20080703
  Serious: Yes (Congenital Anomaly)
  Sender: FDA-Public Use
  Company Number: CH-BRISTOL-MYERS SQUIBB COMPANY-13874722

PATIENT
  Age: 1 Day
  Sex: Male

DRUGS (3)
  1. STOCRIN TABS 600 MG [Suspect]
     Indication: HIV INFECTION
     Route: 064
     Dates: start: 20060203, end: 20070202
  2. EMTRIVA [Concomitant]
     Indication: HIV INFECTION
     Route: 064
     Dates: start: 20060203
  3. VIREAD [Concomitant]
     Indication: HIV INFECTION
     Route: 064
     Dates: start: 20060203

REACTIONS (3)
  - HIP DYSPLASIA [None]
  - PREGNANCY [None]
  - PULMONARY VALVE STENOSIS [None]
